FAERS Safety Report 8044629-0 (Version None)
Quarter: 2012Q1

REPORT INFORMATION
  Report Type: 
  Country: None (occurrence: None)
  Receive Date: 20120113
  Receipt Date: 20120109
  Transmission Date: 20120608
  Serious: Yes (Other)
  Sender: FDA-Public Use
  Company Number: DE-PFIZER INC-2012008505

PATIENT
  Age: 82 Year
  Sex: Female

DRUGS (4)
  1. AMIODARONE HCL [Suspect]
     Dosage: UNK
     Dates: start: 20110101
  2. ATACAND [Concomitant]
     Dosage: UNK
  3. DABIGATRAN ETEXILATE [Concomitant]
  4. MARCUMAR [Concomitant]
     Dosage: UNK

REACTIONS (4)
  - ASTHENIA [None]
  - DYSGEUSIA [None]
  - PNEUMONIA [None]
  - DYSPNOEA [None]
